FAERS Safety Report 12453310 (Version 1)
Quarter: 2016Q2

REPORT INFORMATION
  Report Type: Spontaneous
  Country: GB (occurrence: GB)
  Receive Date: 20160609
  Receipt Date: 20160609
  Transmission Date: 20160815
  Serious: Yes (Other)
  Sender: FDA-Public Use
  Company Number: GB-GILEAD-2016-0217237

PATIENT
  Age: 7 Year
  Sex: Female
  Weight: 24 kg

DRUGS (5)
  1. SILDENAFIL. [Concomitant]
     Active Substance: SILDENAFIL
  2. AMBRISENTAN [Suspect]
     Active Substance: AMBRISENTAN
     Indication: PORTOPULMONARY HYPERTENSION
     Dosage: UNK
     Route: 065
  3. NITRIC OXIDE. [Concomitant]
     Active Substance: NITRIC OXIDE
  4. EPOPROSTENOL. [Concomitant]
     Active Substance: EPOPROSTENOL
  5. LEVOSIMENDAN [Concomitant]
     Active Substance: LEVOSIMENDAN

REACTIONS (2)
  - Off label use [Recovered/Resolved]
  - Drug ineffective [Unknown]
